FAERS Safety Report 20920071 (Version 1)
Quarter: 2022Q2

REPORT INFORMATION
  Report Type: Report from Study
  Country: US (occurrence: US)
  Receive Date: 20220606
  Receipt Date: 20220606
  Transmission Date: 20220721
  Serious: Yes (Other)
  Sender: FDA-Public Use
  Company Number: US-GILEAD-2022-0582087

PATIENT
  Sex: Female

DRUGS (3)
  1. AMBRISENTAN [Suspect]
     Active Substance: AMBRISENTAN
     Indication: Pulmonary arterial hypertension
     Dosage: 5 MG, QD
     Route: 048
     Dates: start: 20220429
  2. ELIQUIS [Concomitant]
     Active Substance: APIXABAN
  3. SILDENAFIL [Concomitant]
     Active Substance: SILDENAFIL

REACTIONS (10)
  - Cardiac failure [Unknown]
  - Condition aggravated [Unknown]
  - Peripheral swelling [Not Recovered/Not Resolved]
  - Weight increased [Unknown]
  - Fatigue [Unknown]
  - Asthenia [Unknown]
  - Chromaturia [Unknown]
  - Cough [Unknown]
  - Paraesthesia [Unknown]
  - Abdominal discomfort [Unknown]
